FAERS Safety Report 8580990-6 (Version None)
Quarter: 2012Q3

REPORT INFORMATION
  Report Type: 
  Country: None (occurrence: None)
  Receive Date: 20120727
  Receipt Date: 20120724
  Transmission Date: 20120928
  Serious: Yes (Death, Other)
  Sender: FDA-Public Use
  Company Number: USA/USA/12/0025139

PATIENT
  Age: 65 Year
  Sex: Female
  Weight: 52.1637 kg

DRUGS (9)
  1. FONDAPARINUX SODIUM [Suspect]
     Indication: THROMBOSIS PROPHYLAXIS
     Dosage: 0.5 MG, 1 D, UNK
     Dates: start: 20120101, end: 20120623
  2. LEVOTHYROXINE SODIUM [Concomitant]
  3. PROTONIX [Concomitant]
  4. METOPROLOL SUCCINATE [Concomitant]
  5. OXYCODONE [Concomitant]
  6. ALLOPURINOL [Concomitant]
  7. FLUDROCORTISONE ACETATE [Concomitant]
  8. PREDNISONE TAB [Concomitant]
  9. ARIMIDEX [Concomitant]

REACTIONS (5)
  - PRODUCT QUALITY ISSUE [None]
  - THROMBOSIS [None]
  - HERPES ZOSTER [None]
  - KIDNEY INFECTION [None]
  - DRUG INEFFECTIVE [None]
